FAERS Safety Report 9502720 (Version 1)
Quarter: 2013Q1

REPORT INFORMATION
  Report Type: Spontaneous
  Country: FR (occurrence: None)
  Receive Date: 20130225
  Receipt Date: 20130225
  Transmission Date: 20140127
  Serious: Yes (Other)
  Sender: FDA-Public Use
  Company Number: 2012-268

PATIENT
  Age: 51 Year
  Sex: Male
  Weight: 90 kg

DRUGS (3)
  1. PRIALT [Suspect]
     Indication: PAIN
     Dates: start: 20110218, end: 20110303
  2. OXYCONTIN (OXYCODONE HYDROCHLORIDE) [Suspect]
  3. ACUPAN [Suspect]

REACTIONS (1)
  - Suicidal ideation [None]
